FAERS Safety Report 13644674 (Version 1)
Quarter: 2017Q2

REPORT INFORMATION
  Report Type: Spontaneous
  Country: US (occurrence: US)
  Receive Date: 20170612
  Receipt Date: 20170612
  Transmission Date: 20170830
  Serious: No
  Sender: FDA-Public Use
  Company Number: US-ROCHE-1442032

PATIENT
  Sex: Male

DRUGS (6)
  1. PERCOCET [Concomitant]
     Active Substance: ACETAMINOPHEN\OXYCODONE HYDROCHLORIDE
  2. XELODA [Suspect]
     Active Substance: CAPECITABINE
     Indication: PRODUCT USED FOR UNKNOWN INDICATION
     Dosage: 14 DAYS ON NO TABS FOR 7 DAYS
     Route: 048
     Dates: start: 20140616, end: 20140723
  3. HUMALOG [Concomitant]
     Active Substance: INSULIN LISPRO
  4. COZAAR [Concomitant]
     Active Substance: LOSARTAN POTASSIUM
  5. LASIX [Concomitant]
     Active Substance: FUROSEMIDE
  6. LIPITOR [Concomitant]
     Active Substance: ATORVASTATIN CALCIUM

REACTIONS (3)
  - Vomiting [Unknown]
  - Nausea [Unknown]
  - Fatigue [Unknown]
